FAERS Safety Report 8091762-3 (Version None)
Quarter: 2012Q1

REPORT INFORMATION
  Report Type: 
  Country: None (occurrence: None)
  Receive Date: 20120129
  Receipt Date: 20111124
  Transmission Date: 20120608
  Serious: No
  Sender: FDA-Public Use
  Company Number: US-ABBOTT-11P-163-0874105-00

PATIENT
  Sex: Male

DRUGS (3)
  1. HUMIRA [Suspect]
  2. HUMIRA [Suspect]
     Dosage: DAY 8
     Route: 058
  3. HUMIRA [Suspect]
     Indication: PSORIASIS
     Dosage: DAY 1
     Route: 058
     Dates: start: 20111101, end: 20111101

REACTIONS (6)
  - PUSTULAR PSORIASIS [None]
  - NEPHROLITHIASIS [None]
  - HAEMATOCHEZIA [None]
  - FEELING COLD [None]
  - OEDEMA PERIPHERAL [None]
  - MUSCLE SPASMS [None]
